FAERS Safety Report 6938999-1 (Version None)
Quarter: 2010Q3

REPORT INFORMATION
  Report Type: 
  Country: None (occurrence: None)
  Receive Date: 20100824
  Receipt Date: 20100429
  Transmission Date: 20110219
  Serious: No
  Sender: FDA-Public Use
  Company Number: US-MYLANLABS-2010S1005025

PATIENT
  Age: 46 Year
  Sex: Female
  Weight: 97.52 kg

DRUGS (11)
  1. LISINOPRIL AND HYDROCHLOROTHIAZIDE [Suspect]
     Indication: BLOOD PRESSURE INCREASED
     Route: 048
     Dates: start: 20100201, end: 20100303
  2. LISINOPRIL AND HYDROCHLOROTHIAZIDE [Suspect]
     Indication: FLUID RETENTION
     Route: 048
     Dates: start: 20100201, end: 20100303
  3. LISINOPRIL AND HYDROCHLOROTHIAZIDE [Suspect]
     Route: 048
     Dates: start: 20100201, end: 20100303
  4. LISINOPRIL AND HYDROCHLOROTHIAZIDE [Suspect]
     Route: 048
     Dates: start: 20100201, end: 20100303
  5. LISINOPRIL AND HYDROCHLOROTHIAZIDE [Suspect]
     Route: 048
     Dates: start: 20090909, end: 20100201
  6. LISINOPRIL AND HYDROCHLOROTHIAZIDE [Suspect]
     Route: 048
     Dates: start: 20090909, end: 20100201
  7. LISINOPRIL AND HYDROCHLOROTHIAZIDE [Suspect]
     Route: 048
     Dates: start: 20090909, end: 20100201
  8. LISINOPRIL AND HYDROCHLOROTHIAZIDE [Suspect]
     Route: 048
     Dates: start: 20090909, end: 20100201
  9. METFORMIN [Concomitant]
  10. HYDROCODONE BITARTRATE + IBUPROFEN [Concomitant]
  11. TYLENOL WITH CODEIN #3 [Concomitant]

REACTIONS (4)
  - ABASIA [None]
  - ARTHRALGIA [None]
  - GOUT [None]
  - PAIN IN EXTREMITY [None]
